FAERS Safety Report 8117645-8 (Version None)
Quarter: 2012Q1

REPORT INFORMATION
  Report Type: 
  Country: None (occurrence: None)
  Receive Date: 20120207
  Receipt Date: 20120127
  Transmission Date: 20120608
  Serious: Yes (Hospitalization)
  Sender: FDA-Public Use
  Company Number: PL-PAR PHARMACEUTICAL, INC-2012SCPR003900

PATIENT

DRUGS (17)
  1. GLICLAZIDE [Concomitant]
     Indication: HYPERGLYCAEMIA
     Dosage: UNK, UNKNOWN
     Route: 065
  2. ACETAMINOPHEN [Concomitant]
     Dosage: 4 SINGLE DOSES PER DAY
     Route: 048
  3. METOPROLOL [Concomitant]
     Indication: PRODUCT USED FOR UNKNOWN INDICATION
     Dosage: UNK, UNKNOWN
     Route: 065
  4. KETOPROFEN [Concomitant]
     Indication: PAIN
     Dosage: UNK, TID
  5. TRAMADOL HCL [Suspect]
     Indication: PAIN
     Dosage: TWO SINGLE DOSES
     Route: 048
  6. ACETAMINOPHEN [Concomitant]
     Indication: PAIN
     Dosage: UNK, UNKNOWN
     Route: 065
  7. ACETYLSALICYLIC ACID SRT [Concomitant]
     Indication: PRODUCT USED FOR UNKNOWN INDICATION
     Dosage: UNK, UNKNOWN
     Route: 065
  8. AMLODIPINE [Concomitant]
     Indication: PRODUCT USED FOR UNKNOWN INDICATION
     Dosage: UNK, UNKNOWN
     Route: 065
  9. VINPOCETINE [Concomitant]
     Indication: PRODUCT USED FOR UNKNOWN INDICATION
     Dosage: UNK, UNKNOWN
     Route: 065
  10. PIRACETAM [Concomitant]
     Indication: PRODUCT USED FOR UNKNOWN INDICATION
     Dosage: UNK, UNKNOWN
     Route: 065
  11. OMEPRAZOLE [Concomitant]
     Indication: PRODUCT USED FOR UNKNOWN INDICATION
     Dosage: UNK, UNKNOWN
     Route: 065
  12. ISOPHANE INSULIN [Concomitant]
     Indication: HYPERGLYCAEMIA
     Dosage: UNK, UNKNOWN
     Route: 065
  13. FUROSEMIDE W/POTASSIUM CHLORIDE [Concomitant]
     Indication: PRODUCT USED FOR UNKNOWN INDICATION
     Dosage: UNK, UNKNOWN
     Route: 065
  14. LISINOPRIL [Concomitant]
     Indication: PRODUCT USED FOR UNKNOWN INDICATION
     Dosage: UNK, UNKNOWN
     Route: 065
  15. PERINDOPRIL ARGININE [Concomitant]
     Indication: PRODUCT USED FOR UNKNOWN INDICATION
     Dosage: UNK, UNKNOWN
     Route: 065
  16. ENOXAPARIN SODIUM [Concomitant]
     Indication: PROPHYLAXIS
     Dosage: UNK, UNKNOWN
     Route: 065
  17. INSULIN HUMAN INJECTION, ISOPHANE [Concomitant]
     Indication: HYPERGLYCAEMIA
     Dosage: UNK, UNKNOWN
     Route: 065

REACTIONS (1)
  - DELIRIUM [None]
